FAERS Safety Report 17893689 (Version 2)
Quarter: 2021Q1

REPORT INFORMATION
  Report Type: Spontaneous
  Country: US (occurrence: US)
  Receive Date: 20200615
  Receipt Date: 20210319
  Transmission Date: 20210419
  Serious: Yes (Hospitalization, Other)
  Sender: FDA-Public Use
  Company Number: US-ASTRAZENECA-2020SE75222

PATIENT
  Age: 26395 Day
  Sex: Male

DRUGS (85)
  1. NEXIUM [Suspect]
     Active Substance: ESOMEPRAZOLE MAGNESIUM
     Indication: GASTROOESOPHAGEAL REFLUX DISEASE
     Route: 048
     Dates: start: 2010
  2. NEXIUM [Suspect]
     Active Substance: ESOMEPRAZOLE MAGNESIUM
     Indication: GASTROOESOPHAGEAL REFLUX DISEASE
     Dosage: GENERIC
     Route: 065
     Dates: start: 2018
  3. DIPHEN/ATROP [Concomitant]
     Active Substance: ATROPINE SULFATE\DIPHENOXYLATE
  4. VALACYCLOVIR [Concomitant]
     Active Substance: VALACYCLOVIR HYDROCHLORIDE
  5. DULOXETINE. [Concomitant]
     Active Substance: DULOXETINE
  6. OXYCODONE AND ACETAMINOPHEN [Concomitant]
     Active Substance: ACETAMINOPHEN\OXYCODONE HYDROCHLORIDE
  7. VORICONAZOLE. [Concomitant]
     Active Substance: VORICONAZOLE
  8. ALENDRONATE [Concomitant]
     Active Substance: ALENDRONATE SODIUM
  9. HYDROXYZINE HYDROCHLORIDE. [Concomitant]
     Active Substance: HYDROXYZINE HYDROCHLORIDE
  10. MORPHINE [Concomitant]
     Active Substance: MORPHINE
  11. FLUCONAZOLE. [Concomitant]
     Active Substance: FLUCONAZOLE
  12. GABAPENTIN. [Concomitant]
     Active Substance: GABAPENTIN
  13. PREVALITE [Concomitant]
     Active Substance: CHOLESTYRAMINE
  14. ACYCLOVIR. [Concomitant]
     Active Substance: ACYCLOVIR
  15. GENTAMICIN. [Concomitant]
     Active Substance: GENTAMICIN
  16. PREDNISOLONE ACETATE. [Concomitant]
     Active Substance: PREDNISOLONE ACETATE
  17. EPIPEN [Concomitant]
     Active Substance: EPINEPHRINE
  18. PHENTERMINE. [Concomitant]
     Active Substance: PHENTERMINE
  19. GLYCOLAX [Concomitant]
     Active Substance: POLYETHYLENE GLYCOL 3350
  20. NEO/POLY [Concomitant]
  21. INDOMETHACIN. [Concomitant]
     Active Substance: INDOMETHACIN
  22. CETIRIZINE [Concomitant]
     Active Substance: CETIRIZINE HYDROCHLORIDE
  23. PROCHLORPERAZINE. [Concomitant]
     Active Substance: PROCHLORPERAZINE
  24. VALIUM [Concomitant]
     Active Substance: DIAZEPAM
  25. LEVOFLOXACIN. [Concomitant]
     Active Substance: LEVOFLOXACIN
     Indication: INFECTION
  26. DOXYCYCLINE. [Concomitant]
     Active Substance: DOXYCYCLINE
     Indication: INFECTION
  27. COLESTIPOL [Concomitant]
     Active Substance: COLESTIPOL
  28. TRAMADOL. [Concomitant]
     Active Substance: TRAMADOL
  29. IBUPROFEN. [Concomitant]
     Active Substance: IBUPROFEN
  30. LIDODERM [Concomitant]
     Active Substance: LIDOCAINE
  31. CEPHALEXIN. [Concomitant]
     Active Substance: CEPHALEXIN
  32. IMIQUIM [Concomitant]
  33. CEFPODOXIME PROXETIL. [Concomitant]
     Active Substance: CEFPODOXIME PROXETIL
  34. MEGLUMINE [Concomitant]
     Active Substance: MEGLUMINE
  35. FLONASE [Concomitant]
     Active Substance: FLUTICASONE PROPIONATE
  36. ASPIRIN. [Concomitant]
     Active Substance: ASPIRIN
  37. LISINOPRIL. [Concomitant]
     Active Substance: LISINOPRIL
     Indication: HYPERTENSION
  38. HYDROCHLOROTHIAZIDE. [Concomitant]
     Active Substance: HYDROCHLOROTHIAZIDE
     Indication: HYPERTENSION
  39. FUROSEMIDE. [Concomitant]
     Active Substance: FUROSEMIDE
     Indication: HYPERTENSION
  40. TRIAMT/HCTZ [Concomitant]
     Active Substance: HYDROCHLOROTHIAZIDE\TRIAMTERENE
  41. NYSTATIN. [Concomitant]
     Active Substance: NYSTATIN
  42. FOLTANX [Concomitant]
  43. CARAFATE [Concomitant]
     Active Substance: SUCRALFATE
  44. NEXIUM [Suspect]
     Active Substance: ESOMEPRAZOLE MAGNESIUM
     Indication: GASTROOESOPHAGEAL REFLUX DISEASE
     Route: 048
     Dates: start: 201001, end: 201810
  45. FLORANEX [Concomitant]
     Active Substance: LACTOBACILLUS ACIDOPHILUS\LACTOBACILLUS DELBRUECKII SUBSP. BULGARICUS
  46. PREDNISONE. [Concomitant]
     Active Substance: PREDNISONE
  47. ONDANSETRON [Concomitant]
     Active Substance: ONDANSETRON
  48. HYDROCOD/ACETAM [Concomitant]
  49. MUPIROCIN. [Concomitant]
     Active Substance: MUPIROCIN
  50. METOPROLOL TARTRATE. [Concomitant]
     Active Substance: METOPROLOL TARTRATE
  51. CARISOPRODOL. [Concomitant]
     Active Substance: CARISOPRODOL
  52. TRAMADOL HYDROCHLORIDE. [Concomitant]
     Active Substance: TRAMADOL HYDROCHLORIDE
  53. FLUTICASONE. [Concomitant]
     Active Substance: FLUTICASONE
  54. BACLOFEN. [Concomitant]
     Active Substance: BACLOFEN
  55. AMLODIPINE BESYLATE. [Concomitant]
     Active Substance: AMLODIPINE BESYLATE
  56. ATORVASTATIN CALCIUM. [Concomitant]
     Active Substance: ATORVASTATIN CALCIUM
  57. OXYCODONE [Concomitant]
     Active Substance: OXYCODONE
  58. AFRIN [Concomitant]
     Active Substance: OXYMETAZOLINE
  59. CLONIDINE. [Concomitant]
     Active Substance: CLONIDINE
     Indication: HYPERTENSION
  60. VITAMIN D [Concomitant]
     Active Substance: VITAMIN D NOS
     Indication: VITAMIN D DEFICIENCY
  61. METRONIDAZOLE. [Concomitant]
     Active Substance: METRONIDAZOLE
  62. CALCIUM GLUC [Concomitant]
  63. WARFARIN [Concomitant]
     Active Substance: WARFARIN
  64. METOCLOPRAM [Concomitant]
     Active Substance: METOCLOPRAMIDE
  65. LINEZOLID. [Concomitant]
     Active Substance: LINEZOLID
  66. PANTOPRAZOLE [Suspect]
     Active Substance: PANTOPRAZOLE
     Indication: GASTROOESOPHAGEAL REFLUX DISEASE
     Dosage: GENERIC
     Route: 065
     Dates: start: 2018
  67. AMOXICILLIN. [Concomitant]
     Active Substance: AMOXICILLIN
     Indication: INFECTION
  68. ALPRAZOLAM. [Concomitant]
     Active Substance: ALPRAZOLAM
  69. TRANSDERM [Concomitant]
  70. XARELTO [Concomitant]
     Active Substance: RIVAROXABAN
  71. AMITRIPTYLINE [Concomitant]
     Active Substance: AMITRIPTYLINE
  72. BISACODYL. [Concomitant]
     Active Substance: BISACODYL
  73. SODIUM CHLORIDE. [Concomitant]
     Active Substance: SODIUM CHLORIDE
  74. LOVENOX [Concomitant]
     Active Substance: ENOXAPARIN SODIUM
  75. AZITHROMYCIN ANHYDROUS. [Concomitant]
     Active Substance: AZITHROMYCIN ANHYDROUS
     Indication: INFECTION
  76. PEPTO?BISMOL [Concomitant]
     Active Substance: BISMUTH SUBSALICYLATE
  77. AMOX/K CLAV [Concomitant]
     Active Substance: AMOXICILLIN\CLAVULANATE POTASSIUM
  78. VENTOLIN HFA [Concomitant]
     Active Substance: ALBUTEROL SULFATE
  79. SMZ/ TMP [Concomitant]
     Active Substance: SULFAMETHOXAZOLE\TRIMETHOPRIM
  80. DOXYCYCLINE HYCLATE. [Concomitant]
     Active Substance: DOXYCYCLINE HYCLATE
  81. LYRICA [Concomitant]
     Active Substance: PREGABALIN
  82. POTASSIUM CHLORIDE. [Concomitant]
     Active Substance: POTASSIUM CHLORIDE
  83. TIZANIDINE. [Concomitant]
     Active Substance: TIZANIDINE
  84. IODAMIDE. [Concomitant]
     Active Substance: IODAMIDE
  85. HYDRALAZINE [Concomitant]
     Active Substance: HYDRALAZINE HYDROCHLORIDE

REACTIONS (3)
  - Acute kidney injury [Not Recovered/Not Resolved]
  - Chronic kidney disease [Not Recovered/Not Resolved]
  - Gastrooesophageal reflux disease [Not Recovered/Not Resolved]

NARRATIVE: CASE EVENT DATE: 20160405
